APPROVED DRUG PRODUCT: FLUCONAZOLE
Active Ingredient: FLUCONAZOLE
Strength: 50MG
Dosage Form/Route: TABLET;ORAL
Application: A076086 | Product #001
Applicant: ANI PHARMACEUTICALS INC
Approved: Jul 29, 2004 | RLD: No | RS: No | Type: DISCN